FAERS Safety Report 9392380 (Version 3)
Quarter: 2013Q3

REPORT INFORMATION
  Report Type: Spontaneous
  Country: JP (occurrence: JP)
  Receive Date: 20130710
  Receipt Date: 20130819
  Transmission Date: 20140515
  Serious: Yes (Other)
  Sender: FDA-Public Use
  Company Number: JP-BRISTOL-MYERS SQUIBB COMPANY-19088772

PATIENT
  Age: 69 Year
  Sex: Female

DRUGS (10)
  1. ABILIFY ORAL SOLUTION [Suspect]
     Indication: PSYCHOTIC DISORDER
     Dosage: 0.1%STRENGTH-24MG MILLIGRAM(S).QD
     Route: 048
     Dates: start: 20130614, end: 20130617
  2. ROHYPNOL [Suspect]
     Indication: INSOMNIA
     Dosage: TAB-1MG,QD;ORAL FOR SLEEP LOSS ON 17JUN2013.?INJ-2MG,QD;INTRAVENOUS FOR SEDATION ON 14JUN13.
     Route: 048
     Dates: start: 20130613, end: 20130617
  3. REMERON [Concomitant]
     Dosage: TABS
     Dates: start: 20130610, end: 20130612
  4. ZYPREXA [Concomitant]
     Dates: start: 20130613, end: 20130613
  5. CALCIUM CHLORIDE [Concomitant]
     Dates: start: 20130614
  6. GLUCOSE [Concomitant]
     Dates: start: 20130614
  7. POTASSIUM CHLORIDE [Concomitant]
     Dates: start: 20130614
  8. HEPARIN SODIUM [Concomitant]
     Dates: start: 20130615
  9. SODIUM ACETATE [Concomitant]
     Dates: start: 20130614
  10. THIAMINE HCL [Concomitant]
     Dates: start: 20130614

REACTIONS (4)
  - Glossoptosis [Recovering/Resolving]
  - Hypoxia [Recovering/Resolving]
  - Infection [Unknown]
  - Wheezing [Unknown]
